FAERS Safety Report 5894869-1 (Version None)
Quarter: 2008Q3

REPORT INFORMATION
  Report Type: 
  Country: None (occurrence: None)
  Receive Date: 20080924
  Receipt Date: 20080714
  Transmission Date: 20090109
  Serious: No
  Sender: FDA-Public Use
  Company Number: US-ASTRAZENECA-2008UW14067

PATIENT
  Age: 56 Year
  Sex: Female
  Weight: 78.5 kg

DRUGS (7)
  1. SEROQUEL XR [Suspect]
     Indication: GENERALISED ANXIETY DISORDER
     Route: 048
     Dates: start: 20071201
  2. LITHIUM [Suspect]
  3. CYMBALTA [Concomitant]
  4. ALPRAZOLAM [Concomitant]
  5. LEVOXYL [Concomitant]
  6. SINGULAIR [Concomitant]
  7. QVAR 40 [Concomitant]
     Route: 055

REACTIONS (5)
  - DYSKINESIA [None]
  - DYSPNOEA [None]
  - GAIT DISTURBANCE [None]
  - PAIN IN EXTREMITY [None]
  - WEIGHT INCREASED [None]
